FAERS Safety Report 6905934-1 (Version None)
Quarter: 2010Q3

REPORT INFORMATION
  Report Type: 
  Country: None (occurrence: None)
  Receive Date: 20100804
  Receipt Date: 20100722
  Transmission Date: 20110219
  Serious: Yes (Other)
  Sender: FDA-Public Use
  Company Number: US-GENENTECH-304815

PATIENT
  Age: 61 Year
  Sex: Female

DRUGS (2)
  1. LUCENTIS [Suspect]
     Indication: RETINAL VEIN OCCLUSION
     Route: 031
  2. LUCENTIS [Suspect]
     Indication: MACULAR OEDEMA

REACTIONS (2)
  - ENDOPHTHALMITIS [None]
  - RETINAL NEOVASCULARISATION [None]
